FAERS Safety Report 5230912-0 (Version None)
Quarter: 2007Q1

REPORT INFORMATION
  Report Type: 
  Country: None (occurrence: None)
  Receive Date: 20070206
  Receipt Date: 20070131
  Transmission Date: 20070707
  Serious: Yes (Other)
  Sender: FDA-Public Use
  Company Number: GB-GLAXOSMITHKLINE-B0359819A

PATIENT
  Sex: Male

DRUGS (1)
  1. SEROXAT [Suspect]
     Dosage: 20MG PER DAY
     Route: 065
     Dates: start: 20020601

REACTIONS (8)
  - ABNORMAL BEHAVIOUR [None]
  - ADVERSE EVENT [None]
  - AGGRESSION [None]
  - ANGER [None]
  - DRUG WITHDRAWAL SYNDROME [None]
  - FEAR [None]
  - SUICIDAL IDEATION [None]
  - SUICIDE ATTEMPT [None]
